FAERS Safety Report 8133006-X (Version None)
Quarter: 2012Q1

REPORT INFORMATION
  Report Type: 
  Country: None (occurrence: None)
  Receive Date: 20120213
  Receipt Date: 20120202
  Transmission Date: 20120608
  Serious: Yes (Other)
  Sender: FDA-Public Use
  Company Number: PHHY2012BR009255

PATIENT
  Age: 69 Year
  Sex: Female

DRUGS (1)
  1. FORMOTEROL FUMARATE [Suspect]
     Indication: EMPHYSEMA
     Dosage: 12/400 MCG

REACTIONS (2)
  - EPISTAXIS [None]
  - HEADACHE [None]
